FAERS Safety Report 21917481 (Version 1)
Quarter: 2023Q1

REPORT INFORMATION
  Report Type: Report from Study
  Country: CA (occurrence: CA)
  Receive Date: 20230126
  Receipt Date: 20230126
  Transmission Date: 20230417
  Serious: Yes (Other)
  Sender: FDA-Public Use
  Company Number: CA-CELLTRION INC.-2023CA001863

PATIENT

DRUGS (2)
  1. TRUXIMA [Suspect]
     Active Substance: RITUXIMAB-ABBS
     Indication: Chronic inflammatory demyelinating polyradiculoneuropathy
     Dosage: TRUXIMA (375MG/M2 X BSA)/1000 MG IV Q2 WEEKS X 2 DOSES
     Route: 042
  2. TRUXIMA [Suspect]
     Active Substance: RITUXIMAB-ABBS
     Indication: Monoclonal gammopathy

REACTIONS (6)
  - Anti-myelin-associated glycoprotein associated polyneuropathy [Unknown]
  - Chronic inflammatory demyelinating polyradiculoneuropathy [Unknown]
  - Monoclonal gammopathy [Unknown]
  - Inability to afford medication [Unknown]
  - Insurance issue [Unknown]
  - Off label use [Unknown]
